FAERS Safety Report 13975682 (Version 2)
Quarter: 2017Q4

REPORT INFORMATION
  Report Type: Spontaneous
  Country: US (occurrence: US)
  Receive Date: 20170915
  Receipt Date: 20171002
  Transmission Date: 20180321
  Serious: Yes (Hospitalization)
  Sender: FDA-Public Use
  Company Number: US-EDGEWELL PERSONAL CARE, LLC-2026421

PATIENT
  Age: 62 Year
  Sex: Female

DRUGS (1)
  1. WALGREENS SUNSCREEN CLEAR ZINC BROAD SPECTRUM SPF 50 [Suspect]
     Active Substance: OCTOCRYLENE\ZINC OXIDE
     Indication: PROPHYLAXIS AGAINST SOLAR RADIATION
     Route: 061
     Dates: start: 20170801, end: 20170801

REACTIONS (4)
  - Skin exfoliation [Unknown]
  - Systemic inflammatory response syndrome [None]
  - Thermal burn [Unknown]
  - Cellulitis [Unknown]
